FAERS Safety Report 7620566-8 (Version None)
Quarter: 2011Q3

REPORT INFORMATION
  Report Type: 
  Country: None (occurrence: None)
  Receive Date: 20110719
  Receipt Date: 20110707
  Transmission Date: 20111222
  Serious: Yes (Hospitalization, Other)
  Sender: FDA-Public Use
  Company Number: US-ROCHE-775839

PATIENT
  Sex: Male
  Weight: 56.7 kg

DRUGS (3)
  1. ACCUTANE [Suspect]
     Route: 048
     Dates: start: 19981001, end: 19990201
  2. ACCUTANE [Suspect]
     Dosage: DOSE: 80MG ON EVEN DAYS AND 40MG ON ODD DAYS (1.2-1.3 MG/KG PER DAY)
     Route: 048
     Dates: start: 19990830, end: 19991222
  3. ACCUTANE [Suspect]
     Indication: ACNE
     Route: 048
     Dates: start: 19980101

REACTIONS (10)
  - CROHN'S DISEASE [None]
  - ECZEMA [None]
  - DRY SKIN [None]
  - DEPRESSION [None]
  - SUICIDAL IDEATION [None]
  - INFLAMMATORY BOWEL DISEASE [None]
  - COLITIS ULCERATIVE [None]
  - LIP DRY [None]
  - PANIC ATTACK [None]
  - GENERALISED ANXIETY DISORDER [None]
